FAERS Safety Report 18382297 (Version 1)
Quarter: 2020Q4

REPORT INFORMATION
  Report Type: Spontaneous
  Country: US (occurrence: US)
  Receive Date: 20201013
  Receipt Date: 20201013
  Transmission Date: 20210114
  Serious: Yes (Hospitalization)
  Sender: FDA-Public Use
  Company Number: None

PATIENT
  Age: 52 Year
  Sex: Female
  Weight: 90.7 kg

DRUGS (6)
  1. CYCLOPHOSPHAMIDE. [Suspect]
     Active Substance: CYCLOPHOSPHAMIDE
     Dates: end: 20201004
  2. RITUXIMAB/HYALURONIDASE [Concomitant]
     Active Substance: HYALURONIDASE (HUMAN RECOMBINANT)\RITUXIMAB
     Dates: end: 20200930
  3. DOXORUBICIN HYDROCHLORIDE. [Suspect]
     Active Substance: DOXORUBICIN HYDROCHLORIDE
     Dates: end: 20201004
  4. ETOPOSIDE (VP-16) [Suspect]
     Active Substance: ETOPOSIDE
     Dates: end: 20201004
  5. VINCRISTINE SULFATE. [Suspect]
     Active Substance: VINCRISTINE SULFATE
     Dates: end: 20201004
  6. PREDNISONE. [Suspect]
     Active Substance: PREDNISONE
     Dates: end: 20201004

REACTIONS (6)
  - Stridor [None]
  - Dysphagia [None]
  - Oropharyngeal pain [None]
  - White blood cell count decreased [None]
  - Neutrophil count decreased [None]
  - Pyrexia [None]

NARRATIVE: CASE EVENT DATE: 20201011
